FAERS Safety Report 25765191 (Version 1)
Quarter: 2025Q3

REPORT INFORMATION
  Report Type: Spontaneous
  Country: CN (occurrence: CN)
  Receive Date: 20250905
  Receipt Date: 20250905
  Transmission Date: 20251020
  Serious: Yes (Hospitalization, Other)
  Sender: STRIDES
  Company Number: CN-STRIDES ARCOLAB LIMITED-2025SP011303

PATIENT
  Age: 67 Year
  Sex: Female

DRUGS (3)
  1. AMOXICILLIN [Suspect]
     Active Substance: AMOXICILLIN
     Indication: Infection
     Route: 065
  2. LEVOFLOXACIN [Suspect]
     Active Substance: LEVOFLOXACIN
     Indication: Infection
     Route: 065
  3. CEFACLOR [Suspect]
     Active Substance: CEFACLOR
     Indication: Infection
     Route: 065

REACTIONS (3)
  - Acinetobacter infection [Recovered/Resolved]
  - Abscess neck [Recovered/Resolved]
  - Pathogen resistance [Unknown]
